FAERS Safety Report 6145507-4 (Version None)
Quarter: 2009Q2

REPORT INFORMATION
  Report Type: 
  Country: None (occurrence: None)
  Receive Date: 20090402
  Receipt Date: 20090318
  Transmission Date: 20091009
  Serious: Yes (Life-Threatening, Hospitalization)
  Sender: FDA-Public Use
  Company Number: 2009S1004707

PATIENT
  Age: 33 Year
  Sex: Male

DRUGS (22)
  1. ETOPOSIDE [Suspect]
     Indication: TESTIS CANCER
     Dosage: 190 MG; DAILY INTRAVENOUS
     Route: 042
     Dates: start: 20081117, end: 20081121
  2. ETOPOSIDE [Suspect]
     Indication: TESTIS CANCER
     Dosage: 190 MG; DAILY INTRAVENOUS
     Route: 042
     Dates: start: 20081208, end: 20081212
  3. ETOPOSIDE [Suspect]
     Indication: TESTIS CANCER
     Dosage: 190 MG; DAILY INTRAVENOUS
     Route: 042
     Dates: start: 20081117, end: 20090102
  4. ETOPOSIDE [Suspect]
     Indication: TESTIS CANCER
     Dosage: 190 MG; DAILY INTRAVENOUS
     Route: 042
     Dates: start: 20081229, end: 20090102
  5. BLEOMYCIN SULFATE [Suspect]
     Indication: TESTIS CANCER
     Dosage: 30 MG; ONCE INTRAVENOUS, 30 MG; ONCE
     Route: 042
     Dates: start: 20081117
  6. BLEOMYCIN SULFATE [Suspect]
     Indication: TESTIS CANCER
     Dosage: 30 MG; ONCE INTRAVENOUS, 30 MG; ONCE
     Route: 042
     Dates: start: 20081117
  7. BLEOMYCIN SULFATE [Suspect]
     Indication: TESTIS CANCER
     Dosage: 30 MG; ONCE INTRAVENOUS, 30 MG; ONCE
     Route: 042
     Dates: start: 20081124
  8. BLEOMYCIN SULFATE [Suspect]
     Indication: TESTIS CANCER
     Dosage: 30 MG; ONCE INTRAVENOUS, 30 MG; ONCE
     Route: 042
     Dates: start: 20081201
  9. BLEOMYCIN SULFATE [Suspect]
     Indication: TESTIS CANCER
     Dosage: 30 MG; ONCE INTRAVENOUS, 30 MG; ONCE
     Route: 042
     Dates: start: 20081208
  10. BLEOMYCIN SULFATE [Suspect]
     Indication: TESTIS CANCER
     Dosage: 30 MG; ONCE INTRAVENOUS, 30 MG; ONCE
     Route: 042
     Dates: start: 20081215
  11. BLEOMYCIN SULFATE [Suspect]
     Indication: TESTIS CANCER
     Dosage: 30 MG; ONCE INTRAVENOUS, 30 MG; ONCE
     Route: 042
     Dates: start: 20081222
  12. BLEOMYCIN SULFATE [Suspect]
     Indication: TESTIS CANCER
     Dosage: 30 MG; ONCE INTRAVENOUS, 30 MG; ONCE
     Route: 042
     Dates: start: 20081229
  13. BLEOMYCIN SULFATE [Suspect]
     Indication: TESTIS CANCER
     Dosage: 30 MG; ONCE INTRAVENOUS, 30 MG; ONCE
     Route: 042
     Dates: start: 20090105
  14. BLEOMYCIN SULFATE [Suspect]
     Indication: TESTIS CANCER
     Dosage: 30 MG; ONCE INTRAVENOUS, 30 MG; ONCE
     Route: 042
     Dates: start: 20090112
  15. CISPLATIN [Suspect]
     Indication: TESTIS CANCER
     Dosage: 30 MG; DAILY INTRAVENOUS, 30 MG; DAILY
     Route: 042
     Dates: start: 20081117, end: 20081121
  16. CISPLATIN [Suspect]
     Indication: TESTIS CANCER
     Dosage: 30 MG; DAILY INTRAVENOUS, 30 MG; DAILY
     Route: 042
     Dates: start: 20081208, end: 20081212
  17. CISPLATIN [Suspect]
     Indication: TESTIS CANCER
     Dosage: 30 MG; DAILY INTRAVENOUS, 30 MG; DAILY
     Route: 042
     Dates: start: 20081117, end: 20090102
  18. CISPLATIN [Suspect]
     Indication: TESTIS CANCER
     Dosage: 30 MG; DAILY INTRAVENOUS, 30 MG; DAILY
     Route: 042
     Dates: start: 20081229, end: 20090102
  19. NEUPOGEN [Concomitant]
  20. HYDROCORTISONE [Concomitant]
  21. PANTOPRAZOLE SODIUM [Concomitant]
  22. VOGALENE (METOPIMAZINE) [Concomitant]

REACTIONS (8)
  - CYTOLYTIC HEPATITIS [None]
  - FALL [None]
  - HEPATIC FAILURE [None]
  - HEPATITIS B [None]
  - LIVER TRANSPLANT [None]
  - NEUTROPENIA [None]
  - STOMATITIS [None]
  - WHITE BLOOD CELL COUNT DECREASED [None]
